FAERS Safety Report 7180643-5 (Version None)
Quarter: 2010Q4

REPORT INFORMATION
  Report Type: 
  Country: None (occurrence: None)
  Receive Date: 20101221
  Receipt Date: 20101214
  Transmission Date: 20110411
  Serious: Yes (Hospitalization, Other)
  Sender: FDA-Public Use
  Company Number: US-US-EMD SERONO, INC.-7030926

PATIENT
  Sex: Female
  Weight: 96 kg

DRUGS (1)
  1. REBIF [Suspect]
     Indication: MULTIPLE SCLEROSIS
     Route: 058
     Dates: start: 20100607

REACTIONS (3)
  - MUSCULAR WEAKNESS [None]
  - OPTIC NEURITIS [None]
  - VIRAL INFECTION [None]
